FAERS Safety Report 18351429 (Version 3)
Quarter: 2020Q4

REPORT INFORMATION
  Report Type: Report from Study
  Country: JP (occurrence: JP)
  Receive Date: 20201006
  Receipt Date: 20201223
  Transmission Date: 20210114
  Serious: Yes (Hospitalization, Other)
  Sender: FDA-Public Use
  Company Number: JP-BAUSCH-BL-2020-028441

PATIENT
  Age: 46 Year
  Sex: Male
  Weight: 44.4 kg

DRUGS (15)
  1. TAKECAB [Concomitant]
     Active Substance: VONOPRAZAN FUMARATE
     Indication: PRODUCT USED FOR UNKNOWN INDICATION
  2. DOXAZOSIN [Concomitant]
     Active Substance: DOXAZOSIN MESYLATE
     Indication: PRODUCT USED FOR UNKNOWN INDICATION
  3. MAGNESIUM OXIDE. [Concomitant]
     Active Substance: MAGNESIUM OXIDE
     Indication: PRODUCT USED FOR UNKNOWN INDICATION
  4. BIO-THREE [Concomitant]
     Active Substance: HERBALS
     Indication: PRODUCT USED FOR UNKNOWN INDICATION
  5. PANTETHINE [Concomitant]
     Active Substance: PANTETHINE
     Indication: PRODUCT USED FOR UNKNOWN INDICATION
  6. ALFACALCIDOL [Concomitant]
     Active Substance: ALFACALCIDOL
     Indication: PRODUCT USED FOR UNKNOWN INDICATION
  7. SENNOSIDES. [Concomitant]
     Active Substance: SENNOSIDES
     Indication: PRODUCT USED FOR UNKNOWN INDICATION
  8. DEMSER [Suspect]
     Active Substance: METYROSINE
     Dosage: DOSE INCREASED TO 250 MG (IN THE MORNING, AFTERNOON, AND EVENING), DURATION: 1 MONTH 13 DAYS
     Route: 048
     Dates: start: 20190627, end: 20190808
  9. DEMSER [Suspect]
     Active Substance: METYROSINE
     Dosage: DOSE REDUCED TO 250 MG (IN THE MORNING AND BEFORE BEDTIME), DURATION: 6 MONTHS 14 DAYS
     Route: 048
     Dates: start: 20190809, end: 20200222
  10. THYRADIN S [Concomitant]
     Active Substance: LEVOTHYROXINE SODIUM
     Indication: PRODUCT USED FOR UNKNOWN INDICATION
  11. CORTRIL [Concomitant]
     Active Substance: HYDROCORTISONE
     Indication: PRODUCT USED FOR UNKNOWN INDICATION
  12. GASCON [Concomitant]
     Active Substance: DIMETHICONE
     Indication: PRODUCT USED FOR UNKNOWN INDICATION
  13. AMITIZA [Concomitant]
     Active Substance: LUBIPROSTONE
     Indication: PRODUCT USED FOR UNKNOWN INDICATION
  14. DEMSER [Suspect]
     Active Substance: METYROSINE
     Indication: BLOOD CATECHOLAMINES INCREASED
     Dosage: IN THE MORNING AND EVENING
     Route: 048
     Dates: start: 20190314, end: 20190324
  15. DEMSER [Suspect]
     Active Substance: METYROSINE
     Route: 048
     Dates: start: 20190608, end: 20190626

REACTIONS (3)
  - Pneumonia [Recovered/Resolved]
  - Somnolence [Recovered/Resolved]
  - Infection [Unknown]

NARRATIVE: CASE EVENT DATE: 20190808
